FAERS Safety Report 11612152 (Version 4)
Quarter: 2016Q1

REPORT INFORMATION
  Report Type: Report from Study
  Country: US (occurrence: US)
  Receive Date: 20151008
  Receipt Date: 20160129
  Transmission Date: 20160525
  Serious: Yes (Other)
  Sender: FDA-Public Use
  Company Number: US-GLAXOSMITHKLINE-US2015GSK138200

PATIENT
  Age: 71 Year
  Sex: Female

DRUGS (2)
  1. BELIMUMAB [Suspect]
     Active Substance: BELIMUMAB
     Indication: SYSTEMIC LUPUS ERYTHEMATOSUS
     Dosage: UNK
     Route: 065
     Dates: start: 201205
  2. PREDNISONE. [Suspect]
     Active Substance: PREDNISONE
     Indication: IMMUNOSUPPRESSION
     Dosage: UNK

REACTIONS (8)
  - Hydronephrosis [Unknown]
  - Urinary tract infection [Unknown]
  - Blood urine present [Unknown]
  - Renal cyst [Unknown]
  - Pathogen resistance [Unknown]
  - Central venous catheterisation [Unknown]
  - Escherichia infection [Unknown]
  - Pain [Unknown]

NARRATIVE: CASE EVENT DATE: 201207
